FAERS Safety Report 8205497-7 (Version None)
Quarter: 2012Q1

REPORT INFORMATION
  Report Type: 
  Country: None (occurrence: None)
  Receive Date: 20120313
  Receipt Date: 20120305
  Transmission Date: 20120608
  Serious: Yes (Hospitalization, Other)
  Sender: FDA-Public Use
  Company Number: US-CELGENEUS-163-21880-11102368

PATIENT
  Sex: Male

DRUGS (12)
  1. COREG [Concomitant]
     Route: 065
  2. POTASSIUM [Concomitant]
     Route: 065
  3. FLEXERIL [Concomitant]
     Route: 065
  4. REVLIMID [Suspect]
     Dosage: 5 MILLIGRAM
     Route: 048
     Dates: start: 20110225
  5. REVLIMID [Suspect]
     Indication: MULTIPLE MYELOMA
     Dosage: 15 MILLIGRAM
     Route: 048
     Dates: start: 20070412
  6. LASIX [Concomitant]
     Route: 065
  7. ANTIBIOTICS [Concomitant]
     Route: 065
  8. ASPIRIN [Concomitant]
     Route: 065
  9. ZOMETA [Concomitant]
     Route: 065
  10. ALLOPURINOL [Concomitant]
     Route: 065
  11. LESCOL [Concomitant]
     Route: 065
  12. LOPRESSOR [Concomitant]
     Route: 065

REACTIONS (2)
  - OSTEONECROSIS OF JAW [None]
  - OSTEOMYELITIS [None]
